FAERS Safety Report 24297432 (Version 1)
Quarter: 2024Q3

REPORT INFORMATION
  Report Type: Spontaneous
  Country: CA (occurrence: CA)
  Receive Date: 20240909
  Receipt Date: 20240909
  Transmission Date: 20241016
  Serious: No
  Sender: ALKEM
  Company Number: CA-ALKEM LABORATORIES LIMITED-CA-ALKEM-2024-11612

PATIENT
  Age: 50 Year
  Sex: Female

DRUGS (15)
  1. PREGABALIN [Suspect]
     Active Substance: PREGABALIN
     Indication: Neuralgia
     Dosage: 300 MILLIGRAM, BID (TWICE DAILY)
     Route: 048
  2. PREGABALIN [Suspect]
     Active Substance: PREGABALIN
     Indication: Notalgia paraesthetica
  3. METHADONE HYDROCHLORIDE [Suspect]
     Active Substance: METHADONE HYDROCHLORIDE
     Indication: Neuralgia
     Dosage: 30 MILLIGRAM, TID (THREE TIMES A DAY)
     Route: 048
  4. METHADONE HYDROCHLORIDE [Suspect]
     Active Substance: METHADONE HYDROCHLORIDE
     Indication: Dependence
  5. METHADONE HYDROCHLORIDE [Suspect]
     Active Substance: METHADONE HYDROCHLORIDE
     Indication: Notalgia paraesthetica
  6. HYDROCORTISONE [Suspect]
     Active Substance: HYDROCORTISONE\HYDROCORTISONE ACETATE
     Indication: Notalgia paraesthetica
     Dosage: UNK (CREAM)
     Route: 061
  7. ACETAMINOPHEN\CODEINE PHOSPHATE [Suspect]
     Active Substance: ACETAMINOPHEN\CODEINE PHOSPHATE
     Indication: Notalgia paraesthetica
     Dosage: UNK, QD (300 MILLIGRAM- 30 MILLIGRAM, 2-4 TABLETS PER DAY)
     Route: 065
  8. ACETAMINOPHEN\CODEINE PHOSPHATE [Suspect]
     Active Substance: ACETAMINOPHEN\CODEINE PHOSPHATE
     Indication: Neuralgia
  9. BACLOFEN [Suspect]
     Active Substance: BACLOFEN
     Indication: Notalgia paraesthetica
     Dosage: UNK
     Route: 065
  10. CYCLOBENZAPRINE [Suspect]
     Active Substance: CYCLOBENZAPRINE
     Indication: Notalgia paraesthetica
     Dosage: UNK
     Route: 065
  11. METHOCARBAMOL [Suspect]
     Active Substance: METHOCARBAMOL
     Indication: Notalgia paraesthetica
     Dosage: UNK
     Route: 065
  12. NABILONE [Suspect]
     Active Substance: NABILONE
     Indication: Neuralgia
     Dosage: 0.5 MILLIGRAM, HS (BED TIME)
     Route: 048
  13. NABILONE [Suspect]
     Active Substance: NABILONE
     Indication: Notalgia paraesthetica
  14. MIRTAZAPINE [Concomitant]
     Active Substance: MIRTAZAPINE
     Indication: Insomnia
     Dosage: 15 MILLIGRAM, HS (BED TIME)
     Route: 048
  15. QUETIAPINE [Concomitant]
     Active Substance: QUETIAPINE
     Indication: Insomnia
     Dosage: UNK, HS (12.5-25 MILLIGRAM)
     Route: 048

REACTIONS (1)
  - Therapy non-responder [Unknown]
